FAERS Safety Report 5086744-X (Version None)
Quarter: 2006Q3

REPORT INFORMATION
  Report Type: 
  Country: None (occurrence: None)
  Receive Date: 20060823
  Receipt Date: 20060815
  Transmission Date: 20061208
  Serious: Yes (Disabling)
  Sender: FDA-Public Use
  Company Number: GB-JNJFOC-20060804064

PATIENT
  Age: 23 Year
  Sex: Female
  Weight: 104 kg

DRUGS (2)
  1. TOPAMAX [Suspect]
     Indication: MIGRAINE PROPHYLAXIS
     Route: 048
  2. CERAZETTE [Concomitant]
     Indication: CONTRACEPTION
     Route: 048

REACTIONS (1)
  - BLINDNESS [None]
